FAERS Safety Report 5680020-X (Version None)
Quarter: 2008Q1

REPORT INFORMATION
  Report Type: 
  Country: None (occurrence: None)
  Receive Date: 20080325
  Receipt Date: 20080325
  Transmission Date: 20080703
  Serious: Yes (Other)
  Sender: FDA-Public Use
  Company Number: None

PATIENT
  Age: 75 Year
  Sex: Male
  Weight: 72.5755 kg

DRUGS (1)
  1. XALATAN [Suspect]
     Indication: GLAUCOMA
     Dosage: 1 DROP IN R EYE DAILY IN EVENING OPHTHALMIC
     Route: 047
     Dates: start: 20080322, end: 20080323

REACTIONS (9)
  - EYE DISORDER [None]
  - EYE SWELLING [None]
  - INSTILLATION SITE IRRITATION [None]
  - INSTILLATION SITE LACRIMATION [None]
  - INSTILLATION SITE REACTION [None]
  - MEDICATION TAMPERING [None]
  - PHARMACEUTICAL PRODUCT COMPLAINT [None]
  - THERAPEUTIC PRODUCT CONTAMINATION [None]
  - VISION BLURRED [None]
